FAERS Safety Report 15632113 (Version 1)
Quarter: 2018Q4

REPORT INFORMATION
  Report Type: Spontaneous
  Country: GB (occurrence: GB)
  Receive Date: 20181119
  Receipt Date: 20181119
  Transmission Date: 20190205
  Serious: Yes (Hospitalization, Disabling, Other)
  Sender: FDA-Public Use
  Company Number: GB-BAUSCH-BL-2018-031363

PATIENT
  Age: 67 Year
  Sex: Female

DRUGS (4)
  1. ENSURE [Concomitant]
     Active Substance: AMINO ACIDS\DEXTROSE\ELECTROLYTES NOS\SOYBEAN OIL\VITAMINS
     Indication: DYSPHAGIA
     Route: 048
     Dates: start: 2010
  2. ATROVENT [Suspect]
     Active Substance: IPRATROPIUM BROMIDE
     Indication: PRODUCT USED FOR UNKNOWN INDICATION
     Route: 065
     Dates: start: 2016
  3. PREDNISOLONE. [Suspect]
     Active Substance: PREDNISOLONE
     Indication: PRODUCT USED FOR UNKNOWN INDICATION
     Route: 065
     Dates: start: 2016
  4. BRICANYL [Suspect]
     Active Substance: TERBUTALINE SULFATE
     Indication: ASTHMA
     Route: 055
     Dates: start: 1982

REACTIONS (9)
  - Chest pain [Unknown]
  - Product quality issue [Unknown]
  - Hypersensitivity [Not Recovered/Not Resolved]
  - Dysphagia [Not Recovered/Not Resolved]
  - Withdrawal syndrome [Unknown]
  - Rhinorrhoea [Not Recovered/Not Resolved]
  - Dependence [Unknown]
  - Choking sensation [Not Recovered/Not Resolved]
  - Asthma [Unknown]
